FAERS Safety Report 11151120 (Version 1)
Quarter: 2015Q2

REPORT INFORMATION
  Report Type: Spontaneous
  Country: CH (occurrence: None)
  Receive Date: 20150528
  Receipt Date: 20150528
  Transmission Date: 20150821
  Serious: Yes (Other)
  Sender: FDA-Public Use
  Company Number: CH2015067965

PATIENT
  Age: 29 Year
  Sex: Female

DRUGS (2)
  1. KLACID UNO (CLARITHROMYCIN) TABLET [Suspect]
     Active Substance: CLARITHROMYCIN
     Route: 048
     Dates: start: 201503, end: 201503
  2. TRIUMEQ [Suspect]
     Active Substance: ABACAVIR SULFATE\DOLUTEGRAVIR SODIUM\LAMIVUDINE
     Indication: HIV INFECTION
     Route: 048
     Dates: start: 20150405

REACTIONS (1)
  - Exposure during pregnancy [None]

NARRATIVE: CASE EVENT DATE: 201503
